FAERS Safety Report 17426932 (Version 3)
Quarter: 2020Q1

REPORT INFORMATION
  Report Type: Spontaneous
  Country: US (occurrence: US)
  Receive Date: 20200217
  Receipt Date: 20200317
  Transmission Date: 20200409
  Serious: Yes (Other)
  Sender: FDA-Public Use
  Company Number: US-BAYER-2020-027449

PATIENT
  Age: 30 Year
  Sex: Female
  Weight: 56.56 kg

DRUGS (1)
  1. MIRENA [Suspect]
     Active Substance: LEVONORGESTREL
     Indication: CONTRACEPTION
     Dosage: 20 ?G PER DAY, CONTINUOUSLY^
     Route: 015
     Dates: start: 20191106, end: 20191204

REACTIONS (4)
  - Post procedural haemorrhage [None]
  - Post procedural discomfort [None]
  - Device expulsion [Recovered/Resolved]
  - Procedural pain [None]

NARRATIVE: CASE EVENT DATE: 2019
